FAERS Safety Report 9324480 (Version 2)
Quarter: 2014Q1

REPORT INFORMATION
  Report Type: Spontaneous
  Country: US (occurrence: US)
  Receive Date: 20130603
  Receipt Date: 20140311
  Transmission Date: 20141002
  Serious: Yes (Hospitalization)
  Sender: FDA-Public Use
  Company Number: US-B.I. PHARMACEUTICALS,INC./RIDGEFIELD-2013-BI-15316BP

PATIENT
  Age: 85 Year
  Sex: Male
  Weight: 149.69 kg

DRUGS (7)
  1. PRADAXA [Suspect]
     Indication: ATRIAL FIBRILLATION
     Dosage: 150 MG
     Route: 048
     Dates: start: 20110418, end: 20110904
  2. DIGOXIN [Concomitant]
     Dosage: 250 MCG
     Route: 048
  3. METOPROLOL TARTRATE [Concomitant]
     Dosage: 50 MG
     Route: 048
  4. DIOVAN [Concomitant]
     Dosage: 160 MG
     Route: 048
  5. LASIX [Concomitant]
     Dosage: 80 MG
     Route: 048
  6. GLUCOTROL [Concomitant]
     Dosage: 320 MG
     Route: 048
  7. LEVOXYL [Concomitant]
     Dosage: 0.1 MG
     Route: 048

REACTIONS (3)
  - Lower gastrointestinal haemorrhage [Unknown]
  - Haemorrhagic anaemia [Unknown]
  - Haematuria [Unknown]
